FAERS Safety Report 6423073-3 (Version None)
Quarter: 2009Q4

REPORT INFORMATION
  Report Type: 
  Country: None (occurrence: None)
  Receive Date: 20091102
  Receipt Date: 20091022
  Transmission Date: 20100525
  Serious: Yes (Hospitalization)
  Sender: FDA-Public Use
  Company Number: FR-PFIZER INC-2009219486

PATIENT
  Age: 57 Year

DRUGS (1)
  1. CELEBREX [Suspect]
     Indication: OSTEOARTHRITIS
     Dosage: 200 MG, 1X/DAY
     Route: 048
     Dates: start: 20090501, end: 20090701

REACTIONS (9)
  - ASTHENIA [None]
  - CHILLS [None]
  - COUGH [None]
  - DYSPNOEA [None]
  - DYSSTASIA [None]
  - DYSURIA [None]
  - PYREXIA [None]
  - TRANSAMINASES INCREASED [None]
  - URINARY TRACT INFECTION [None]
